FAERS Safety Report 10522485 (Version 1)
Quarter: 2014Q4

REPORT INFORMATION
  Report Type: Report from Study
  Country: US (occurrence: US)
  Receive Date: 20141016
  Receipt Date: 20141016
  Transmission Date: 20150528
  Serious: Yes (Other)
  Sender: FDA-Public Use
  Company Number: US-JNJFOC-20141009574

PATIENT
  Age: 34 Year
  Sex: Female

DRUGS (1)
  1. NUCYNTA ER [Suspect]
     Active Substance: TAPENTADOL HYDROCHLORIDE
     Indication: PAIN
     Dosage: 350 MG
     Route: 048
     Dates: start: 20140627

REACTIONS (6)
  - Apnoea [Recovered/Resolved]
  - Tachycardia [Not Recovered/Not Resolved]
  - Electrocardiogram QT prolonged [Unknown]
  - Intentional product misuse [Unknown]
  - Unresponsive to stimuli [Recovering/Resolving]
  - Cyanosis [Recovered/Resolved]

NARRATIVE: CASE EVENT DATE: 20140627
